FAERS Safety Report 9588784 (Version 1)
Quarter: 2013Q4

REPORT INFORMATION
  Report Type: Spontaneous
  Country: US (occurrence: US)
  Receive Date: 20131003
  Receipt Date: 20131003
  Transmission Date: 20140711
  Serious: No
  Sender: FDA-Public Use
  Company Number: US-AMGEN-USASP2012067515

PATIENT
  Age: 77 Year
  Sex: Female

DRUGS (2)
  1. ENBREL [Suspect]
     Indication: RHEUMATOID ARTHRITIS
     Dosage: 50 MG, QWK
     Route: 058
     Dates: start: 201209
  2. HUMIRA [Concomitant]
     Dosage: UNK

REACTIONS (4)
  - Wound [Not Recovered/Not Resolved]
  - Paranasal sinus hypersecretion [Unknown]
  - Fall [Unknown]
  - Sinusitis [Not Recovered/Not Resolved]
